FAERS Safety Report 4317535-2 (Version None)
Quarter: 2004Q1

REPORT INFORMATION
  Report Type: 
  Country: None (occurrence: None)
  Receive Date: 20040312
  Receipt Date: 20040226
  Transmission Date: 20041129
  Serious: Yes (Hospitalization)
  Sender: FDA-Public Use
  Company Number: S04-USA-01205-01

PATIENT
  Age: 89 Year
  Sex: Female

DRUGS (3)
  1. NAMENDA [Suspect]
     Indication: DEMENTIA ALZHEIMER'S TYPE
     Dosage: 10 MG BID PO
     Route: 048
     Dates: start: 20040213
  2. NAMENDA [Suspect]
     Indication: DEMENTIA ALZHEIMER'S TYPE
     Dosage: 5 MG QD PO
     Route: 048
     Dates: start: 20040123, end: 20040101
  3. NAMENDA [Suspect]
     Indication: DEMENTIA ALZHEIMER'S TYPE
     Dates: start: 20040101, end: 20040212

REACTIONS (6)
  - ASTHENIA [None]
  - DIZZINESS [None]
  - FALL [None]
  - NAUSEA [None]
  - SOMNOLENCE [None]
  - TREMOR [None]
